FAERS Safety Report 9071191 (Version 1)
Quarter: 2013Q1

REPORT INFORMATION
  Report Type: Report from Study
  Country: PR (occurrence: PR)
  Receive Date: 20130129
  Receipt Date: 20130129
  Transmission Date: 20140127
  Serious: No
  Sender: FDA-Public Use
  Company Number: PR-ABBOTT-12P-131-0914992-00

PATIENT
  Age: 17 None
  Sex: Female
  Weight: 44.04 kg

DRUGS (2)
  1. HUMIRA 40 MG/0.8 ML PEN [Suspect]
     Indication: PRODUCT USED FOR UNKNOWN INDICATION
     Route: 058
     Dates: start: 201110, end: 201203
  2. SINGULAR [Concomitant]
     Indication: ASTHMA
     Route: 048

REACTIONS (2)
  - Bronchitis [Recovering/Resolving]
  - Nasopharyngitis [Recovering/Resolving]
